FAERS Safety Report 5005825-X (Version None)
Quarter: 2006Q1

REPORT INFORMATION
  Report Type: 
  Country: None (occurrence: None)
  Receive Date: 20060327
  Receipt Date: 20051222
  Transmission Date: 20060701
  Serious: Yes (Other)
  Sender: FDA-Public Use
  Company Number: PHEH2005US13794

PATIENT
  Age: 9 Year
  Sex: Female
  Weight: 22.2 kg

DRUGS (1)
  1. FOCALIN XR [Suspect]
     Indication: ATTENTION DEFICIT/HYPERACTIVITY DISORDER
     Dosage: 10 MG, QD, ORAL
     Route: 048
     Dates: start: 20051101, end: 20051216

REACTIONS (2)
  - AFFECT LABILITY [None]
  - HYPERTENSION [None]
